FAERS Safety Report 10025114 (Version 6)
Quarter: 2015Q1

REPORT INFORMATION
  Report Type: Spontaneous
  Country: US (occurrence: None)
  Receive Date: 20140314
  Receipt Date: 20150116
  Transmission Date: 20150720
  Serious: Yes (Other)
  Sender: FDA-Public Use
  Company Number: 2014-US-002763

PATIENT
  Age: 67 Year
  Sex: Male
  Weight: 73.4 kg

DRUGS (5)
  1. XYREM [Suspect]
     Active Substance: SODIUM OXYBATE
     Indication: INSOMNIA
     Route: 048
     Dates: start: 200808, end: 2008
  2. SINEMET [Suspect]
     Active Substance: CARBIDOPA\LEVODOPA
     Indication: PARKINSON^S DISEASE
     Dates: start: 201402, end: 201404
  3. TRIHEXYPHENIDYL HYDROCHLORIDE (TRIHEXYPHENIDYL HYDRCHORIDE) [Concomitant]
  4. XYREM [Suspect]
     Active Substance: SODIUM OXYBATE
     Indication: FIBROMYALGIA
     Route: 048
     Dates: start: 200808, end: 2008
  5. XYREM [Suspect]
     Active Substance: SODIUM OXYBATE
     Indication: SLEEP DISORDER
     Route: 048
     Dates: start: 200808, end: 2008

REACTIONS (10)
  - Road traffic accident [None]
  - Parkinson^s disease [None]
  - Off label use [None]
  - Anxiety [None]
  - Vomiting [None]
  - Abdominal discomfort [None]
  - Diarrhoea [None]
  - Sleep paralysis [None]
  - Sudden onset of sleep [None]
  - Dementia [None]

NARRATIVE: CASE EVENT DATE: 20130723
